FAERS Safety Report 23307905 (Version 2)
Quarter: 2023Q4

REPORT INFORMATION
  Report Type: Spontaneous
  Country: US (occurrence: US)
  Receive Date: 20231218
  Receipt Date: 20231226
  Transmission Date: 20240109
  Serious: Yes (Life-Threatening, Hospitalization, Other)
  Sender: FDA-Public Use
  Company Number: US-MLMSERVICE-20231206-4710661-1

PATIENT
  Age: 10 Year
  Sex: Female
  Weight: 20 kg

DRUGS (3)
  1. MIDAZOLAM [Suspect]
     Active Substance: MIDAZOLAM
     Dosage: 10 MG (0.5 MG/KG), SINGLE
     Route: 045
  2. LEVETIRACETAM [Concomitant]
     Active Substance: LEVETIRACETAM
     Indication: Epilepsy
     Dosage: UNK
  3. CETIRIZINE [Concomitant]
     Active Substance: CETIRIZINE HYDROCHLORIDE
     Indication: Seasonal allergy
     Dosage: UNK

REACTIONS (2)
  - Off label use [Recovered/Resolved]
  - Anaphylactic reaction [Recovered/Resolved]
